FAERS Safety Report 12400161 (Version 1)
Quarter: 2016Q2

REPORT INFORMATION
  Report Type: Spontaneous
  Country: BR (occurrence: BR)
  Receive Date: 20160524
  Receipt Date: 20160524
  Transmission Date: 20160815
  Serious: Yes (Other)
  Sender: FDA-Public Use
  Company Number: BR-BIOMARINAP-BR-2016-109887

PATIENT
  Sex: Female

DRUGS (1)
  1. ALDURAZYME [Suspect]
     Active Substance: LARONIDASE
     Indication: MUCOPOLYSACCHARIDOSIS I
     Dosage: UNK
     Route: 041
     Dates: start: 20121130, end: 20160506

REACTIONS (5)
  - Pyrexia [Unknown]
  - Diarrhoea [Unknown]
  - Vomiting [Unknown]
  - Bedridden [Unknown]
  - Viral infection [Unknown]
